FAERS Safety Report 9797508 (Version 2)
Quarter: 2014Q3

REPORT INFORMATION
  Report Type: Spontaneous
  Country: US (occurrence: None)
  Receive Date: 20131231
  Receipt Date: 20140701
  Transmission Date: 20150326
  Serious: Yes (Death, Hospitalization)
  Sender: FDA-Public Use
  Company Number: 2013US002899

PATIENT
  Age: 76 Year
  Sex: Female
  Weight: 79.8 kg

DRUGS (21)
  1. SULFAMETHOXAZOLE W/TRIMETHOPRIM (SULFAMETHOXAZOLE W/TRIMETHOPRIM) [Concomitant]
  2. ZOLOFT [Concomitant]
     Active Substance: SERTRALINE HYDROCHLORIDE
  3. LISINOPRIL (LISINOPRIL) [Concomitant]
     Active Substance: LISINOPRIL
  4. ZOFRAN (ONDANSETRON HYDROCHLORIDE) [Concomitant]
  5. PONATINIB (AP24534) TABLET [Suspect]
     Active Substance: PONATINIB
     Indication: ACUTE LYMPHOCYTIC LEUKAEMIA
     Route: 048
     Dates: start: 20131126, end: 20131202
  6. ZOVIRAX (ZOVIRAX) [Concomitant]
  7. LASIX [Concomitant]
     Active Substance: FUROSEMIDE
  8. DURAGESIC (FENTANYL) [Concomitant]
  9. ADVAIR (FLUTICASONE PROPIONATE, SALMETEROL XINAFOATE) INHALER [Concomitant]
  10. K-DUR (POTASSIUM CHLORIDE) [Concomitant]
  11. SYNTHROID [Concomitant]
     Active Substance: LEVOTHYROXINE SODIUM
  12. NEURONTIN [Concomitant]
     Active Substance: GABAPENTIN
  13. PERCOCET [Concomitant]
     Active Substance: ACETAMINOPHEN\OXYCODONE HYDROCHLORIDE
  14. DECADRON (DEXAMETHASONE PHOSPHATE) [Concomitant]
  15. OXYCODONE (OXYCODONE) [Concomitant]
     Active Substance: OXYCODONE
  16. VENTOLIN [Concomitant]
     Active Substance: ALBUTEROL SULFATE
  17. PHENERGAN [Concomitant]
     Active Substance: PROMETHAZINE HYDROCHLORIDE
  18. ATARAX [Concomitant]
     Active Substance: HYDROXYZINE\HYDROXYZINE HYDROCHLORIDE
  19. ATIVAN [Concomitant]
     Active Substance: LORAZEPAM
  20. ANUSOL-HC (HYDROCORTISONE ACETATE) [Concomitant]
  21. NAPROSYN (NAPROXEN) [Concomitant]

REACTIONS (7)
  - Leukocytosis [None]
  - Diverticulitis [None]
  - Clostridium difficile colitis [None]
  - Colitis ischaemic [None]
  - Thrombocytopenia [None]
  - Transaminases increased [None]
  - Dyspnoea [None]

NARRATIVE: CASE EVENT DATE: 20131202
